FAERS Safety Report 7884920-1 (Version None)
Quarter: 2011Q4

REPORT INFORMATION
  Report Type: 
  Country: None (occurrence: None)
  Receive Date: 20111102
  Receipt Date: 20111031
  Transmission Date: 20120403
  Serious: Yes (Other)
  Sender: FDA-Public Use
  Company Number: US-AMGEN-USASP2011054841

PATIENT
  Age: 81 Year
  Sex: Male
  Weight: 60.317 kg

DRUGS (6)
  1. TIMOLOL MALEATE [Concomitant]
  2. CORTICOSTEROIDS [Concomitant]
     Indication: IDIOPATHIC THROMBOCYTOPENIC PURPURA
  3. PREDNISONE [Concomitant]
     Indication: COELIAC DISEASE
  4. NPLATE [Suspect]
     Indication: IDIOPATHIC THROMBOCYTOPENIC PURPURA
     Dosage: 300 MUG, UNK
     Dates: start: 20101027, end: 20110412
  5. ZOCOR [Concomitant]
     Indication: BLOOD CHOLESTEROL
  6. OMEPRAZOLE [Concomitant]
     Indication: GASTROOESOPHAGEAL REFLUX DISEASE

REACTIONS (1)
  - THROMBOCYTOPENIA [None]
